FAERS Safety Report 8080019-2 (Version None)
Quarter: 2012Q1

REPORT INFORMATION
  Report Type: 
  Country: None (occurrence: None)
  Receive Date: 20120128
  Receipt Date: 20110811
  Transmission Date: 20120608
  Serious: No
  Sender: FDA-Public Use
  Company Number: US-ABBOTT-11P-163-0845793-00

PATIENT
  Age: 42 Year
  Sex: Female

DRUGS (2)
  1. HUMIRA [Suspect]
     Indication: PSORIASIS
     Dates: start: 20110630
  2. TOPICAL STEROID CREAM [Concomitant]
     Indication: PRODUCT USED FOR UNKNOWN INDICATION

REACTIONS (7)
  - NAUSEA [None]
  - ABDOMINAL DISTENSION [None]
  - SKIN EXFOLIATION [None]
  - HEADACHE [None]
  - NASAL CONGESTION [None]
  - PSORIASIS [None]
  - ALOPECIA [None]
